FAERS Safety Report 5411224-9 (Version None)
Quarter: 2007Q3

REPORT INFORMATION
  Report Type: 
  Country: None (occurrence: None)
  Receive Date: 20070810
  Receipt Date: 20070802
  Transmission Date: 20080115
  Serious: Yes (Hospitalization)
  Sender: FDA-Public Use
  Company Number: B0481757A

PATIENT
  Sex: Male

DRUGS (4)
  1. VALTREX [Suspect]
     Indication: DRUG USE FOR UNKNOWN INDICATION
     Dosage: 1000MG THREE TIMES PER DAY
     Route: 048
     Dates: start: 20070725, end: 20070726
  2. LOXONIN [Concomitant]
  3. METHYCOBAL [Concomitant]
  4. ARASENA-A [Concomitant]
     Route: 061

REACTIONS (3)
  - ABDOMINAL DISCOMFORT [None]
  - HALLUCINATION [None]
  - NERVOUS SYSTEM DISORDER [None]
